FAERS Safety Report 14107747 (Version 2)
Quarter: 2017Q4

REPORT INFORMATION
  Report Type: Spontaneous
  Country: US (occurrence: US)
  Receive Date: 20171019
  Receipt Date: 20171108
  Transmission Date: 20180321
  Serious: Yes (Hospitalization)
  Sender: FDA-Public Use
  Company Number: US-PFIZER INC-2017450326

PATIENT
  Age: 69 Year
  Sex: Male
  Weight: 85.73 kg

DRUGS (6)
  1. SUTENT [Suspect]
     Active Substance: SUNITINIB MALATE
     Indication: RENAL DISORDER
     Dosage: 50 MG, 1X/DAY (50MG; ONE CAPSULE ONCE DAILY IN THE MORNING)
     Route: 048
     Dates: start: 20170913, end: 20170916
  2. NORCO [Concomitant]
     Active Substance: ACETAMINOPHEN\HYDROCODONE BITARTRATE
     Dosage: UNK
  3. SUTENT [Suspect]
     Active Substance: SUNITINIB MALATE
     Dosage: 50 MG, 1X/DAY
     Dates: start: 20170913, end: 20170917
  4. DILAUDID [Concomitant]
     Active Substance: HYDROMORPHONE HYDROCHLORIDE
     Dosage: 2 MG, UNK
  5. BABY ASPIRIN [Concomitant]
     Active Substance: ASPIRIN
     Indication: CARDIAC DISORDER
     Dosage: 81 MG, 1X/DAY (81MG COATED TABLET ONCE A DAY, TOOK IT IN THE MORNING OR WHEN HE THINKS OF IT)
  6. BABY ASPIRIN [Concomitant]
     Active Substance: ASPIRIN
     Dosage: UNK
     Dates: start: 2006, end: 2017

REACTIONS (13)
  - Decreased appetite [Recovering/Resolving]
  - Malaise [Unknown]
  - Arthropathy [Unknown]
  - Asthenia [Unknown]
  - Vomiting [Unknown]
  - Gait disturbance [Unknown]
  - Dyspnoea [Unknown]
  - Nausea [Unknown]
  - Slow speech [Unknown]
  - Peripheral swelling [Unknown]
  - Weight decreased [Unknown]
  - Cough [Unknown]
  - Dysgeusia [Unknown]

NARRATIVE: CASE EVENT DATE: 20170916
